FAERS Safety Report 5906104-6 (Version None)
Quarter: 2008Q4

REPORT INFORMATION
  Report Type: 
  Country: None (occurrence: None)
  Receive Date: 20081002
  Receipt Date: 20080924
  Transmission Date: 20090506
  Serious: Yes (Hospitalization)
  Sender: FDA-Public Use
  Company Number: PHHY2008GB22854

PATIENT

DRUGS (1)
  1. FEMARA [Suspect]

REACTIONS (1)
  - DYSPHAGIA [None]
